FAERS Safety Report 7553437-6 (Version None)
Quarter: 2011Q2

REPORT INFORMATION
  Report Type: 
  Country: None (occurrence: None)
  Receive Date: 20110609
  Receipt Date: 20110526
  Transmission Date: 20111010
  Serious: Yes (Life-Threatening, Hospitalization)
  Sender: FDA-Public Use
  Company Number: GR/UKI/11/0018542

PATIENT
  Age: 34 Year
  Sex: Female

DRUGS (4)
  1. CHLORPHENIRAMINE TAB [Suspect]
     Indication: PRODUCT USED FOR UNKNOWN INDICATION
     Dosage: INTRAVNEOUS (NOT SPECIFIED OTHERWISE)
  2. ACETAMINOPHEN [Suspect]
     Indication: PRODUCT USED FOR UNKNOWN INDICATION
     Dosage: ORAL
     Route: 048
  3. FLUOXETINE [Suspect]
     Indication: PRODUCT USED FOR UNKNOWN INDICATION
     Dosage: 40 MG, 1 IN 1 D
  4. LORATADINE [Suspect]
     Indication: PRODUCT USED FOR UNKNOWN INDICATION
     Dosage: 10 MG, 1 IN 1 D, ORAL
     Route: 048

REACTIONS (11)
  - HYPOKALAEMIA [None]
  - CARDIAC ARREST [None]
  - VENTRICULAR TACHYCARDIA [None]
  - HYPOMAGNESAEMIA [None]
  - ALCOHOL WITHDRAWAL SYNDROME [None]
  - ANAPHYLACTOID REACTION [None]
  - ARRHYTHMIA [None]
  - ELECTROCARDIOGRAM QT PROLONGED [None]
  - TORSADE DE POINTES [None]
  - OVERDOSE [None]
  - VENTRICULAR FIBRILLATION [None]
